FAERS Safety Report 9012538 (Version 1)
Quarter: 2013Q1

REPORT INFORMATION
  Report Type: Spontaneous
  Country: US (occurrence: US)
  Receive Date: 20130114
  Receipt Date: 20130114
  Transmission Date: 20140127
  Serious: Yes (Hospitalization)
  Sender: FDA-Public Use
  Company Number: US-009507513-1301USA004117

PATIENT
  Sex: Female

DRUGS (13)
  1. SINGULAIR [Suspect]
  2. CRESTOR [Suspect]
     Route: 048
  3. MAGNESIUM (UNSPECIFIED) [Concomitant]
  4. OMEGA-3 MARINE TRIGLYCERIDES [Concomitant]
  5. ZYRTEC [Concomitant]
  6. THERAPY UNSPECIFIED [Concomitant]
  7. ASPIRIN [Concomitant]
  8. VITAMIN D (UNSPECIFIED) [Concomitant]
     Dosage: BIWEEKLY
  9. RELAFEN [Concomitant]
  10. K-DUR [Concomitant]
  11. LASIX (FUROSEMIDE SODIUM) [Concomitant]
  12. ACCUPRIL [Concomitant]
  13. VERAPAMIL [Concomitant]

REACTIONS (1)
  - Ventricular extrasystoles [Unknown]
